FAERS Safety Report 24565911 (Version 1)
Quarter: 2024Q4

REPORT INFORMATION
  Report Type: Spontaneous
  Country: CN (occurrence: CN)
  Receive Date: 20241030
  Receipt Date: 20241030
  Transmission Date: 20250115
  Serious: Yes (Hospitalization)
  Sender: ELI LILLY AND COMPANY
  Company Number: CN-Merck Healthcare KGaA-2024055872

PATIENT
  Age: 67 Year
  Sex: Male
  Weight: 58 kg

DRUGS (5)
  1. ERBITUX [Suspect]
     Active Substance: CETUXIMAB
     Indication: Colon cancer
     Dosage: 700 MG, UNKNOWN
     Route: 041
     Dates: start: 20240927, end: 20240927
  2. FLUOROURACIL [Suspect]
     Active Substance: FLUOROURACIL
     Indication: Colon cancer
     Dosage: 0.6 G, UNKNOWN
     Route: 040
     Dates: start: 20240927, end: 20240927
  3. FLUOROURACIL [Suspect]
     Active Substance: FLUOROURACIL
     Dosage: 3.5 G, UNKNOWN
     Route: 042
     Dates: start: 20240927, end: 20240927
  4. IRINOTECAN HYDROCHLORIDE [Suspect]
     Active Substance: IRINOTECAN HYDROCHLORIDE
     Indication: Colon cancer
     Dosage: 240 MG, UNKNOWN
     Route: 041
     Dates: start: 20240927, end: 20240927
  5. LEUCOVORIN CALCIUM [Concomitant]
     Active Substance: LEUCOVORIN CALCIUM
     Indication: Colon cancer
     Dosage: 0.6 G, UNKNOWN
     Route: 042
     Dates: start: 20240927

REACTIONS (2)
  - Myelosuppression [Recovering/Resolving]
  - Neutrophil count decreased [Recovering/Resolving]

NARRATIVE: CASE EVENT DATE: 20240927
